FAERS Safety Report 7069745-1 (Version None)
Quarter: 2010Q4

REPORT INFORMATION
  Report Type: 
  Country: None (occurrence: None)
  Receive Date: 20101028
  Receipt Date: 20100510
  Transmission Date: 20110411
  Serious: No
  Sender: FDA-Public Use
  Company Number: US-WYE-H15073010

PATIENT
  Sex: Male

DRUGS (3)
  1. PROTONIX [Suspect]
     Dosage: 40 MG (FREQUENCY UNKNOWN)
     Route: 065
     Dates: start: 20100301
  2. ACETYLSALICYLIC ACID SRT [Suspect]
     Dosage: UNKNOWN
     Route: 048
  3. CLOPIDOGREL BISULFATE [Suspect]
     Route: 048

REACTIONS (3)
  - CONTUSION [None]
  - NONSPECIFIC REACTION [None]
  - PLATELET FUNCTION TEST ABNORMAL [None]
